FAERS Safety Report 26066054 (Version 2)
Quarter: 2025Q4

REPORT INFORMATION
  Report Type: Other
  Country: US (occurrence: US)
  Receive Date: 20251119
  Receipt Date: 20251217
  Transmission Date: 20260118
  Serious: Yes (Hospitalization)
  Sender: SECURA BIO
  Company Number: US-SECURA BIO, INC.-SECUR-2025-US002144

PATIENT

DRUGS (4)
  1. DUVELISIB [Suspect]
     Active Substance: DUVELISIB
     Indication: T-cell prolymphocytic leukaemia
     Dosage: UNK
     Route: 061
  2. DUVELISIB [Suspect]
     Active Substance: DUVELISIB
     Dosage: UNK
     Route: 061
  3. RUXOLITINIB [Suspect]
     Active Substance: RUXOLITINIB
     Indication: T-cell prolymphocytic leukaemia
     Dosage: UNK
     Route: 061
  4. RUXOLITINIB [Suspect]
     Active Substance: RUXOLITINIB
     Dosage: UNK
     Route: 061

REACTIONS (2)
  - Cognitive disorder [Recovered/Resolved]
  - Product use in unapproved indication [Unknown]
